FAERS Safety Report 16732853 (Version 2)
Quarter: 2019Q4

REPORT INFORMATION
  Report Type: Spontaneous
  Country: US (occurrence: US)
  Receive Date: 20190823
  Receipt Date: 20191220
  Transmission Date: 20200122
  Serious: No
  Sender: FDA-Public Use
  Company Number: US-UNITED THERAPEUTICS-UNT-2019-013889

PATIENT
  Sex: Female
  Weight: 87.53 kg

DRUGS (2)
  1. LETAIRIS [Concomitant]
     Active Substance: AMBRISENTAN
     Indication: PRODUCT USED FOR UNKNOWN INDICATION
     Dosage: UNK
     Route: 065
  2. REMODULIN [Suspect]
     Active Substance: TREPROSTINIL
     Indication: PULMONARY ARTERIAL HYPERTENSION
     Dosage: 0.0655 ?G/KG, CONTINUING
     Route: 058
     Dates: start: 20140905

REACTIONS (2)
  - Infusion site extravasation [Not Recovered/Not Resolved]
  - Subcutaneous drug absorption impaired [Recovered/Resolved]
